FAERS Safety Report 6028960-6 (Version None)
Quarter: 2009Q1

REPORT INFORMATION
  Report Type: 
  Country: None (occurrence: None)
  Receive Date: 20090106
  Receipt Date: 20081224
  Transmission Date: 20090719
  Serious: Yes (Hospitalization, Other)
  Sender: FDA-Public Use
  Company Number: IE-AMGEN-UK301591

PATIENT
  Sex: Female
  Weight: 54.7 kg

DRUGS (7)
  1. NEULASTA [Suspect]
     Indication: NEUTROPENIA
     Route: 058
     Dates: start: 20070617, end: 20070706
  2. CARBOPLATIN [Concomitant]
  3. GEMCITABINE [Concomitant]
  4. AVASTIN [Concomitant]
  5. ADRIAMYCIN PFS [Concomitant]
     Route: 042
     Dates: start: 20070614, end: 20070620
  6. CYCLOPHOSPHAMIDE [Concomitant]
     Route: 042
     Dates: start: 20070614, end: 20070620
  7. DEXAMETASON [Concomitant]
     Route: 042
     Dates: start: 20070614, end: 20070620

REACTIONS (2)
  - DRUG INEFFECTIVE [None]
  - FEBRILE NEUTROPENIA [None]
